FAERS Safety Report 13180532 (Version 2)
Quarter: 2017Q1

REPORT INFORMATION
  Report Type: Report from Study
  Country: CA (occurrence: CA)
  Receive Date: 20170202
  Receipt Date: 20170313
  Transmission Date: 20170428
  Serious: Yes (Hospitalization, Other)
  Sender: FDA-Public Use
  Company Number: CA-GLAXOSMITHKLINE-CA2017GSK008939

PATIENT
  Age: 52 Year
  Sex: Female

DRUGS (8)
  1. FENTANYL. [Concomitant]
     Active Substance: FENTANYL
  2. ENBREL [Concomitant]
     Active Substance: ETANERCEPT
  3. REMICADE [Concomitant]
     Active Substance: INFLIXIMAB
  4. IBUPROFEN. [Concomitant]
     Active Substance: IBUPROFEN
  5. DICLOFENAC SODIUM. [Suspect]
     Active Substance: DICLOFENAC SODIUM
     Indication: PRODUCT USED FOR UNKNOWN INDICATION
     Route: 065
  6. NAPROXEN. [Concomitant]
     Active Substance: NAPROXEN
  7. VIOXX [Concomitant]
     Active Substance: ROFECOXIB
  8. CELEBREX [Concomitant]
     Active Substance: CELECOXIB

REACTIONS (13)
  - Dyspnoea [Unknown]
  - Pain [Not Recovered/Not Resolved]
  - Crying [Unknown]
  - General physical health deterioration [Unknown]
  - Cardiomyopathy [Unknown]
  - Feeling abnormal [Unknown]
  - Depressed mood [Unknown]
  - Infection [Unknown]
  - Cardiac disorder [Unknown]
  - Pleural effusion [Unknown]
  - Malaise [Unknown]
  - Inflammation [Not Recovered/Not Resolved]
  - Anxiety [Unknown]

NARRATIVE: CASE EVENT DATE: 20170115
